FAERS Safety Report 13773960 (Version 3)
Quarter: 2017Q3

REPORT INFORMATION
  Report Type: Spontaneous
  Country: US (occurrence: US)
  Receive Date: 20170720
  Receipt Date: 20170920
  Transmission Date: 20171127
  Serious: No
  Sender: FDA-Public Use
  Company Number: US-RECKITT BENCKISER HEALTHCARE INT LIMITED-RB-85493-2017

PATIENT
  Age: 63 Year
  Sex: Female

DRUGS (1)
  1. MUCINEX [Suspect]
     Active Substance: GUAIFENESIN
     Indication: PRODUCT USED FOR UNKNOWN INDICATION
     Dosage: UNK (TOOK IT FOR THREE DAYS)
     Route: 065
     Dates: start: 201603

REACTIONS (5)
  - Unevaluable event [Recovered/Resolved]
  - Dry mouth [Recovered/Resolved]
  - Mucosal dryness [Recovered/Resolved]
  - Bronchitis [Recovered/Resolved]
  - Oral discomfort [Recovered/Resolved]

NARRATIVE: CASE EVENT DATE: 2016
